FAERS Safety Report 21057292 (Version 1)
Quarter: 2022Q3

REPORT INFORMATION
  Report Type: Spontaneous
  Country: US (occurrence: None)
  Receive Date: 20220707
  Receipt Date: 20220707
  Transmission Date: 20221027
  Serious: Yes (Life-Threatening, Hospitalization, Other)
  Sender: FDA-Public Use
  Company Number: None

PATIENT
  Age: 30 Year
  Sex: Male
  Weight: 114.75 kg

DRUGS (7)
  1. SUBOXONE [Suspect]
     Active Substance: BUPRENORPHINE HYDROCHLORIDE\NALOXONE HYDROCHLORIDE
     Indication: Drug dependence
     Dosage: OTHER QUANTITY : 3 TABLET(S);?FREQUENCY : 3 TIMES A DAY;?
     Route: 060
     Dates: start: 20120131
  2. SUBOXONE [Suspect]
     Active Substance: BUPRENORPHINE HYDROCHLORIDE\NALOXONE HYDROCHLORIDE
     Indication: Pain
  3. SUBUTEX [Suspect]
     Active Substance: BUPRENORPHINE HYDROCHLORIDE
  4. Suboxone 8-2 mg sub 3 times daily [Concomitant]
  5. Adderal XR 30MG 1 daily [Concomitant]
  6. Linsinapril 20mg tab 1 daily [Concomitant]
  7. Oxybutin 5mg once a day [Concomitant]

REACTIONS (11)
  - Hyperhidrosis [None]
  - Loss of consciousness [None]
  - Renal failure [None]
  - Muscle spasms [None]
  - Dehydration [None]
  - Skin wrinkling [None]
  - Tooth fracture [None]
  - Dental caries [None]
  - Tooth abscess [None]
  - Toothache [None]
  - Tooth infection [None]

NARRATIVE: CASE EVENT DATE: 20180707
